FAERS Safety Report 4911208-0 (Version None)
Quarter: 2006Q1

REPORT INFORMATION
  Report Type: 
  Country: None (occurrence: None)
  Receive Date: 20060209
  Receipt Date: 20060131
  Transmission Date: 20060701
  Serious: Yes (Hospitalization)
  Sender: FDA-Public Use
  Company Number: 144435USA

PATIENT
  Age: 52 Year
  Sex: Male

DRUGS (14)
  1. PIMOZIDE [Suspect]
     Indication: MENTAL DISORDER
     Dosage: ORAL
     Route: 048
     Dates: start: 19960101, end: 20051001
  2. FLUNITRAZEPAM [Suspect]
     Indication: MENTAL DISORDER
     Dosage: ORAL
     Route: 048
     Dates: end: 20051001
  3. TRAZADONE [Suspect]
     Indication: MENTAL DISORDER
     Dosage: 1 TABLET, ORAL
     Route: 048
     Dates: end: 20051001
  4. BETHAHISTINE [Suspect]
     Indication: MENTAL DISORDER
     Dosage: ORAL
     Route: 048
  5. PENTOXIFYLLINE [Suspect]
     Indication: VERTIGO
     Dosage: ORAL
     Route: 048
  6. MOLSIDOMINE [Concomitant]
  7. BISOPROLOL [Concomitant]
  8. RANITIDINE [Concomitant]
  9. PRAVASTATIN SODIUM [Concomitant]
  10. ALLOPURINOL [Concomitant]
  11. MAGNESIUM VERLA [Concomitant]
  12. AMBROXOL HYDROCHLORIDE [Concomitant]
  13. ISOSORBIDE MONONITRATE [Concomitant]
  14. GLYCERYL TRINITRATE [Concomitant]

REACTIONS (5)
  - EXTRAPYRAMIDAL DISORDER [None]
  - FALL [None]
  - GAIT DISTURBANCE [None]
  - MUSCLE RIGIDITY [None]
  - PARKINSONISM [None]
